FAERS Safety Report 9392137 (Version 1)
Quarter: 2013Q3

REPORT INFORMATION
  Report Type: Spontaneous
  Country: IT (occurrence: IT)
  Receive Date: 20130709
  Receipt Date: 20130709
  Transmission Date: 20140515
  Serious: Yes (Hospitalization, Other)
  Sender: FDA-Public Use
  Company Number: IT-PFIZER INC-2013200908

PATIENT
  Age: 52 Year
  Sex: Male

DRUGS (5)
  1. GABAPENTIN [Suspect]
     Indication: SUICIDE ATTEMPT
     Dosage: 300 MG, TOTAL DOSE
     Route: 048
     Dates: start: 20130412, end: 20130412
  2. RAMIPRIL [Suspect]
     Indication: SUICIDE ATTEMPT
     Dosage: 2 G, TOTAL DOSE
     Route: 048
     Dates: start: 20130412, end: 20130412
  3. IBUPROFEN [Suspect]
     Indication: SUICIDE ATTEMPT
     Dosage: 1.8 G, TOTAL DOSE
     Route: 048
     Dates: start: 20130412, end: 20130412
  4. VOLTAREN [Suspect]
     Indication: SUICIDE ATTEMPT
     Dosage: 750 MG, TOTAL DOSE
     Route: 048
     Dates: start: 20130412, end: 20130412
  5. NUROFEN [Suspect]
     Indication: SUICIDE ATTEMPT
     Dosage: 9 G, TOTAL DOSE
     Route: 048
     Dates: start: 20130412, end: 20130412

REACTIONS (5)
  - Intentional overdose [Unknown]
  - Intentional self-injury [Unknown]
  - Sopor [Unknown]
  - Drug abuse [Unknown]
  - Somnolence [Unknown]
